FAERS Safety Report 5873160-3 (Version None)
Quarter: 2008Q3

REPORT INFORMATION
  Report Type: 
  Country: None (occurrence: None)
  Receive Date: 20080908
  Receipt Date: 20080808
  Transmission Date: 20090109
  Serious: No
  Sender: FDA-Public Use
  Company Number: US-BAYER-200826130NA

PATIENT
  Age: 59 Year
  Sex: Male

DRUGS (8)
  1. LEVITRA [Suspect]
     Indication: PROSTATIC OPERATION
     Dosage: TOTAL DAILY DOSE: 20 MG  UNIT DOSE: 20 MG
     Route: 048
     Dates: start: 20080606, end: 20080610
  2. DIAZIDE [Concomitant]
  3. CALAN [Concomitant]
  4. PREVACID [Concomitant]
  5. CITRUCEL [Concomitant]
  6. ADVAIR DISKUS 100/50 [Concomitant]
  7. GLYCOLAX [Concomitant]
  8. ASPIRIN [Concomitant]

REACTIONS (3)
  - BACK PAIN [None]
  - ERECTILE DYSFUNCTION [None]
  - VISION BLURRED [None]
